FAERS Safety Report 24630782 (Version 1)
Quarter: 2024Q4

REPORT INFORMATION
  Report Type: Spontaneous
  Country: US (occurrence: US)
  Receive Date: 20241118
  Receipt Date: 20241118
  Transmission Date: 20250114
  Serious: Yes (Hospitalization, Other)
  Sender: PFIZER
  Company Number: US-PFIZER INC-PV202400147880

PATIENT
  Age: 83 Year
  Sex: Male
  Weight: 75.11 kg

DRUGS (2)
  1. VYNDAMAX [Suspect]
     Active Substance: TAFAMIDIS
     Indication: Acquired ATTR amyloidosis
     Dosage: 61 MG, 1X/DAY
     Route: 048
     Dates: start: 20230130
  2. ROSUVASTATIN [Concomitant]
     Active Substance: ROSUVASTATIN
     Dosage: 10 MG, DAILY
     Route: 048
     Dates: start: 20240606

REACTIONS (12)
  - Syncope [Unknown]
  - Loss of consciousness [Unknown]
  - Atrial fibrillation [Unknown]
  - Pneumonia [Unknown]
  - Atrioventricular block complete [Unknown]
  - Weight decreased [Unknown]
  - Taste disorder [Unknown]
  - Dizziness [Unknown]
  - Fall [Unknown]
  - Dyspnoea [Unknown]
  - Appetite disorder [Unknown]
  - Diarrhoea [Unknown]

NARRATIVE: CASE EVENT DATE: 20240701
